FAERS Safety Report 8423356-1 (Version None)
Quarter: 2012Q2

REPORT INFORMATION
  Report Type: 
  Country: None (occurrence: None)
  Receive Date: 20120608
  Receipt Date: 20120601
  Transmission Date: 20120825
  Serious: Yes (Hospitalization, Other)
  Sender: FDA-Public Use
  Company Number: GB-TEVA-340755ISR

PATIENT
  Age: 81 Year
  Sex: Male
  Weight: 68 kg

DRUGS (6)
  1. PROPOFOL [Concomitant]
     Indication: INDUCTION OF ANAESTHESIA
     Route: 042
     Dates: start: 20120420
  2. AZILECT [Suspect]
     Indication: PARKINSON'S DISEASE
     Dosage: EVERY MORNING
     Route: 048
     Dates: start: 20120404, end: 20120424
  3. FENTANYL [Concomitant]
     Indication: INDUCTION OF ANAESTHESIA
     Route: 042
     Dates: start: 20120420
  4. PHENYLEPHRINE HYDROCHLORIDE [Interacting]
     Indication: INDUCTION OF ANAESTHESIA
     Route: 042
     Dates: start: 20120420, end: 20120420
  5. CISATRACURIUM BESYLATE [Concomitant]
     Indication: INDUCTION OF ANAESTHESIA
     Dosage: AND FURTHER 8MG DOSE 20/4/2012 AFTER INCREASE IN BLOOD PRESSURE. ALSO GIVEN 9/5/2012, 18MG.
     Route: 042
     Dates: start: 20120420
  6. AZILECT [Interacting]
     Dates: start: 20120511

REACTIONS (3)
  - ANAESTHETIC COMPLICATION [None]
  - BLOOD PRESSURE INCREASED [None]
  - INHIBITORY DRUG INTERACTION [None]
